FAERS Safety Report 7082936-9 (Version None)
Quarter: 2010Q4

REPORT INFORMATION
  Report Type: 
  Country: None (occurrence: None)
  Receive Date: 20101104
  Receipt Date: 20101102
  Transmission Date: 20110411
  Serious: Yes (Death)
  Sender: FDA-Public Use
  Company Number: PHHY2010JP72026

PATIENT
  Age: 79 Year
  Sex: Male

DRUGS (10)
  1. RASILEZ [Suspect]
     Indication: BLOOD PRESSURE INADEQUATELY CONTROLLED
     Dosage: UNK
     Route: 048
     Dates: start: 20100801, end: 20100916
  2. REPTOR [Concomitant]
  3. DOXAZOSIN MESYLATE [Concomitant]
  4. PLETAL [Concomitant]
     Dosage: UNK
  5. WARFARIN [Concomitant]
  6. LASIX [Concomitant]
  7. TAKEPRON [Concomitant]
     Dosage: UNK
  8. 8-HOUR BAYER [Concomitant]
  9. FERROUS CITRATE [Concomitant]
     Dosage: UNK
  10. ADALAT CC [Concomitant]
     Dosage: UNK

REACTIONS (2)
  - INTERSTITIAL LUNG DISEASE [None]
  - SEPSIS [None]
